FAERS Safety Report 16892950 (Version 4)
Quarter: 2019Q4

REPORT INFORMATION
  Report Type: Spontaneous
  Country: CA (occurrence: CA)
  Receive Date: 20191007
  Receipt Date: 20191207
  Transmission Date: 20200122
  Serious: Yes (Other)
  Sender: FDA-Public Use
  Company Number: CA-CELLTRION INC.-2018CA020229

PATIENT

DRUGS (20)
  1. INFLECTRA [Suspect]
     Active Substance: INFLIXIMAB-DYYB
     Dosage: 655 MG, EVERY 6 WEEKS
     Route: 042
     Dates: start: 20190816
  2. INFLECTRA [Suspect]
     Active Substance: INFLIXIMAB-DYYB
     Dosage: 655 MG, UNK
     Route: 042
     Dates: start: 20180719
  3. INFLECTRA [Suspect]
     Active Substance: INFLIXIMAB-DYYB
     Dosage: 655 MG, UNK
     Route: 042
     Dates: start: 20181031
  4. INFLECTRA [Suspect]
     Active Substance: INFLIXIMAB-DYYB
     Dosage: 655 MG EVERY 8 WEEKS
     Route: 042
     Dates: start: 20190816
  5. INFLECTRA [Suspect]
     Active Substance: INFLIXIMAB-DYYB
     Dosage: 655 MG, EVERY 8 WEEKS
     Route: 042
     Dates: start: 20190620
  6. INFLECTRA [Suspect]
     Active Substance: INFLIXIMAB-DYYB
     Dosage: 655 MG, EVERY 8 WEEKS
     Route: 042
     Dates: start: 20190816
  7. INFLECTRA [Suspect]
     Active Substance: INFLIXIMAB-DYYB
     Dosage: 655 MG EVERY 8 WEEKS
     Route: 042
     Dates: start: 20191011
  8. INFLECTRA [Suspect]
     Active Substance: INFLIXIMAB-DYYB
     Dosage: 655 MG, EVERY 8 WEEKS
     Route: 042
     Dates: start: 20181227
  9. INFLECTRA [Suspect]
     Active Substance: INFLIXIMAB-DYYB
     Dosage: 655 MG, EVERY 6 WEEKS
     Route: 042
     Dates: start: 20190816
  10. INFLECTRA [Suspect]
     Active Substance: INFLIXIMAB-DYYB
     Dosage: 655 MG EVERY 6 WEEKS
     Route: 042
     Dates: start: 20191122
  11. DIPHENHYDRAMINE. [Concomitant]
     Active Substance: DIPHENHYDRAMINE
     Dosage: 50 MG, UNK
     Dates: start: 20191122, end: 20191122
  12. HYDROCORTISONE. [Concomitant]
     Active Substance: HYDROCORTISONE
     Dosage: 100 MG, UNK
     Route: 042
     Dates: start: 20191122, end: 20191122
  13. INFLECTRA [Suspect]
     Active Substance: INFLIXIMAB-DYYB
     Dosage: 655 MG, EVERY 8 WEEKS
     Route: 042
     Dates: start: 20190220
  14. TECTA [Concomitant]
     Active Substance: PANTOPRAZOLE MAGNESIUM
     Dosage: 40 MG, DAILY
     Route: 048
  15. INFLECTRA [Suspect]
     Active Substance: INFLIXIMAB-DYYB
     Dosage: 610 MG, EVERY 0, 2, 6 WEEKS, THEN EVERY 8 WEEKS
     Route: 042
     Dates: start: 20180418, end: 20180418
  16. INFLECTRA [Suspect]
     Active Substance: INFLIXIMAB-DYYB
     Dosage: 655 MG, EVERY 8 WEEKS
     Route: 042
     Dates: start: 20190416
  17. MULTIVITAMINS [Concomitant]
     Active Substance: VITAMINS
     Dosage: UNK, 2X/DAY
     Route: 048
  18. INFLECTRA [Suspect]
     Active Substance: INFLIXIMAB-DYYB
     Indication: CROHN^S DISEASE
     Dosage: 610 MG, EVERY 0, 2, 6 WEEKS, THEN EVERY 8 WEEKS
     Route: 042
     Dates: start: 20180404, end: 20180418
  19. INFLECTRA [Suspect]
     Active Substance: INFLIXIMAB-DYYB
     Dosage: 655 MG, EVERY 8 WEEKS
     Route: 042
     Dates: start: 20180517, end: 20190620
  20. INFLECTRA [Suspect]
     Active Substance: INFLIXIMAB-DYYB
     Dosage: 655 MG, UNK
     Route: 042
     Dates: start: 20180904

REACTIONS (15)
  - Infection [Recovering/Resolving]
  - Blood pressure fluctuation [Unknown]
  - Condition aggravated [Recovering/Resolving]
  - Off label use [Unknown]
  - Jaundice [Unknown]
  - Malaise [Unknown]
  - Pyrexia [Recovered/Resolved]
  - Inappropriate schedule of product administration [Unknown]
  - Injury [Unknown]
  - Drug level decreased [Unknown]
  - Migraine [Unknown]
  - Weight increased [Not Recovered/Not Resolved]
  - Nasopharyngitis [Recovering/Resolving]
  - Dizziness [Unknown]
  - Fall [Unknown]

NARRATIVE: CASE EVENT DATE: 20180517
